FAERS Safety Report 13997011 (Version 1)
Quarter: 2017Q3

REPORT INFORMATION
  Report Type: Spontaneous
  Country: GB (occurrence: GB)
  Receive Date: 20170921
  Receipt Date: 20170921
  Transmission Date: 20171128
  Serious: Yes (Disabling)
  Sender: FDA-Public Use
  Company Number: GB-PFIZER INC-2017400929

PATIENT
  Age: 68 Year
  Sex: Male
  Weight: 98 kg

DRUGS (12)
  1. SIMVASTATIN. [Concomitant]
     Active Substance: SIMVASTATIN
     Dosage: 1 DF, 1X/DAY (AT NIGHT.)
     Dates: start: 20161213
  2. EPLERENONE. [Suspect]
     Active Substance: EPLERENONE
     Dosage: UNK
     Dates: start: 20170704
  3. TILDIEM [Concomitant]
     Active Substance: DILTIAZEM HYDROCHLORIDE
     Dosage: 1 DF, 1X/DAY
     Dates: start: 20161213
  4. OMEPRAZOLE. [Concomitant]
     Active Substance: OMEPRAZOLE
     Dosage: 1 DF, 1X/DAY
     Dates: start: 20161213
  5. VENTOLIN [Concomitant]
     Active Substance: ALBUTEROL SULFATE
     Dosage: WHEN REQUIRED (1 OR 2 DOSES)
     Route: 055
     Dates: start: 20170626
  6. BISOPROLOL [Concomitant]
     Active Substance: BISOPROLOL
     Dosage: 1 DF, 1X/DAY
     Dates: start: 20170810
  7. DIGOXIN. [Concomitant]
     Active Substance: DIGOXIN
     Dosage: 1 DF, 1X/DAY
     Dates: start: 20161213
  8. FOSTAIR [Concomitant]
     Active Substance: BECLOMETHASONE\FORMOTEROL
     Dosage: 2 DF, 2X/DAY
     Route: 055
     Dates: start: 20161213
  9. FUROSEMIDE. [Concomitant]
     Active Substance: FUROSEMIDE
     Dosage: 1 DF, 2X/DAY (1 AT 08.00 AND 1 AT 13.00)
     Dates: start: 20170314
  10. WARFARIN SODIUM. [Concomitant]
     Active Substance: WARFARIN SODIUM
     Dosage: 1 DF, AS DIRECTED
     Dates: start: 20161213
  11. CHLORHEXIDINE GLUCONATE. [Concomitant]
     Active Substance: CHLORHEXIDINE GLUCONATE
     Dosage: 1 DF, 2X/DAY
     Dates: start: 20161213
  12. RAMIPRIL. [Concomitant]
     Active Substance: RAMIPRIL
     Dosage: 1 DF, 1X/DAY
     Dates: start: 20161213

REACTIONS (3)
  - Presyncope [Recovered/Resolved]
  - Dizziness [Unknown]
  - Dyspnoea [Recovered/Resolved]

NARRATIVE: CASE EVENT DATE: 2017
